FAERS Safety Report 4805911-0 (Version None)
Quarter: 2005Q4

REPORT INFORMATION
  Report Type: 
  Country: None (occurrence: None)
  Receive Date: 20051021
  Receipt Date: 20051013
  Transmission Date: 20060501
  Serious: Yes (Hospitalization)
  Sender: FDA-Public Use
  Company Number: PHRM2005FR02717

PATIENT
  Age: 64 Year
  Sex: Male
  Weight: 70 kg

DRUGS (2)
  1. AREDIA [Suspect]
     Indication: METASTASES TO BONE
     Dosage: 1 DF QMO ALTERNATELY
     Route: 042
     Dates: start: 20011015, end: 20050715
  2. ZOMETA [Suspect]
     Indication: METASTASES TO BONE
     Dosage: 4 MG QMO ALTERNATIVELY
     Route: 042
     Dates: start: 20011115, end: 20050815

REACTIONS (6)
  - FISTULA [None]
  - OSTEONECROSIS [None]
  - PAIN IN JAW [None]
  - SCINTIGRAPHY [None]
  - TOOTH EXTRACTION [None]
  - WOUND DEBRIDEMENT [None]
